FAERS Safety Report 6192112-X (Version None)
Quarter: 2009Q2

REPORT INFORMATION
  Report Type: 
  Country: None (occurrence: None)
  Receive Date: 20090515
  Receipt Date: 20090507
  Transmission Date: 20091009
  Serious: Yes (Other)
  Sender: FDA-Public Use
  Company Number: US-NOVOPROD-274713

PATIENT
  Age: 3 Year

DRUGS (1)
  1. NOVOSEVEN [Suspect]
     Indication: GASTROINTESTINAL HAEMORRHAGE
     Dosage: TOTAL DOSE 8.770 UG/KG
     Route: 042

REACTIONS (1)
  - THROMBOSIS IN DEVICE [None]
